FAERS Safety Report 6100876-6 (Version None)
Quarter: 2009Q1

REPORT INFORMATION
  Report Type: 
  Country: None (occurrence: None)
  Receive Date: 20090224
  Receipt Date: 20090212
  Transmission Date: 20090719
  Serious: Yes (Other)
  Sender: FDA-Public Use
  Company Number: CHPA2009US04497

PATIENT
  Age: 18 Month
  Sex: Male
  Weight: 11.8 kg

DRUGS (1)
  1. TRIAMINIC CHEST + NASAL CONGESTION (NCH)(GUAIFENESIN, PHENYLEPHRINE HY [Suspect]
     Indication: NASOPHARYNGITIS
     Dosage: 0.5 TSP, Q8H, ORAL
     Route: 048
     Dates: start: 20090201, end: 20090201

REACTIONS (4)
  - CONVULSION [None]
  - EAR INFECTION BACTERIAL [None]
  - INCORRECT DOSE ADMINISTERED [None]
  - PYREXIA [None]
